FAERS Safety Report 9808960 (Version 2)
Quarter: 2014Q1

REPORT INFORMATION
  Report Type: Spontaneous
  Country: FR (occurrence: FR)
  Receive Date: 20140110
  Receipt Date: 20140131
  Transmission Date: 20141002
  Serious: Yes (Hospitalization, Other)
  Sender: FDA-Public Use
  Company Number: FR-PFIZER INC-2014001539

PATIENT
  Age: 42 Year
  Sex: Male

DRUGS (5)
  1. ARACYTINE [Suspect]
     Dosage: UNK
     Dates: start: 20130219, end: 20130225
  2. BICNU [Suspect]
     Dosage: UNK
     Route: 048
     Dates: start: 20130219, end: 20130225
  3. ETOPOSIDE [Suspect]
     Dosage: UNK
     Route: 048
     Dates: start: 20130219, end: 20130225
  4. MELPHALAN [Suspect]
     Dosage: UNK
     Route: 048
     Dates: start: 20130219, end: 20130225
  5. ZELITREX [Concomitant]
     Dosage: 500 MG, UNK
     Route: 048
     Dates: end: 20130223

REACTIONS (1)
  - Hepatocellular injury [Recovered/Resolved]
